FAERS Safety Report 17259450 (Version 2)
Quarter: 2020Q1

REPORT INFORMATION
  Report Type: Spontaneous
  Country: US (occurrence: US)
  Receive Date: 20200110
  Receipt Date: 20200318
  Transmission Date: 20200409
  Serious: No
  Sender: FDA-Public Use
  Company Number: US-BAUSCH-BL-2019-066021

PATIENT
  Age: 81 Year
  Sex: Female

DRUGS (1)
  1. TRULANCE [Suspect]
     Active Substance: PLECANATIDE
     Indication: CONSTIPATION
     Route: 048
     Dates: start: 20191213

REACTIONS (3)
  - Groin pain [Not Recovered/Not Resolved]
  - Therapeutic product effect incomplete [Unknown]
  - Blood pressure increased [Unknown]

NARRATIVE: CASE EVENT DATE: 201912
